FAERS Safety Report 6135233-X (Version None)
Quarter: 2009Q1

REPORT INFORMATION
  Report Type: 
  Country: None (occurrence: None)
  Receive Date: 20090327
  Receipt Date: 20090120
  Transmission Date: 20090719
  Serious: Yes (Hospitalization, Other)
  Sender: FDA-Public Use
  Company Number: US-PFIZER INC-2009157803

PATIENT
  Sex: Male
  Weight: 81.633 kg

DRUGS (1)
  1. DILANTIN-125 [Suspect]
     Indication: CONVULSION
     Dosage: UNK

REACTIONS (4)
  - CONVULSION [None]
  - DRUG LEVEL INCREASED [None]
  - DYSSTASIA [None]
  - MUSCULAR WEAKNESS [None]
